FAERS Safety Report 4288963-9 (Version None)
Quarter: 2004Q1

REPORT INFORMATION
  Report Type: 
  Country: None (occurrence: None)
  Receive Date: 20040205
  Receipt Date: 20030421
  Transmission Date: 20041129
  Serious: Yes (Hospitalization)
  Sender: FDA-Public Use
  Company Number: ETHYOL-02369

PATIENT
  Age: 79 Year
  Sex: Male
  Weight: 62.5964 kg

DRUGS (7)
  1. ETHYOL [Suspect]
     Dosage: 500 MG, 1 IN 1 D, SUBCUTANEOUS
     Route: 058
     Dates: start: 20030408, end: 20030417
  2. ETHYOL [Suspect]
     Dosage: 500 MG, 1 IN 1 D, SUBCUTANEOUS
     Route: 058
     Dates: start: 20030408, end: 20030417
  3. SENOKOT [Concomitant]
  4. ARICEPT [Concomitant]
  5. ASPIRIN [Concomitant]
  6. KYTRIL [Concomitant]
  7. ZYRTEC [Concomitant]

REACTIONS (3)
  - CHILLS [None]
  - PYREXIA [None]
  - WHITE BLOOD CELL COUNT DECREASED [None]
